FAERS Safety Report 11089317 (Version 1)
Quarter: 2015Q2

REPORT INFORMATION
  Report Type: Spontaneous
  Country: US (occurrence: US)
  Receive Date: 20150505
  Receipt Date: 20150505
  Transmission Date: 20150821
  Serious: Yes (Other)
  Sender: FDA-Public Use
  Company Number: US-DRREDDYS-USA/USA/15/0047766

PATIENT
  Age: 3 Month

DRUGS (1)
  1. TACROLIMUS. [Suspect]
     Active Substance: TACROLIMUS
     Indication: IMMUNOSUPPRESSANT DRUG THERAPY
     Route: 065

REACTIONS (7)
  - Subvalvular aortic stenosis [Recovered/Resolved]
  - Hypertension [Recovered/Resolved]
  - Coagulopathy [Recovered/Resolved]
  - Left ventricle outflow tract obstruction [Recovered/Resolved]
  - Cytomegalovirus infection [Recovered/Resolved]
  - Left ventricular hypertrophy [Recovered/Resolved]
  - Haemorrhage [Recovered/Resolved]
